FAERS Safety Report 10990280 (Version 1)
Quarter: 2015Q2

REPORT INFORMATION
  Report Type: Report from Study
  Country: GB (occurrence: GB)
  Receive Date: 20150406
  Receipt Date: 20150406
  Transmission Date: 20150821
  Serious: Yes (Other)
  Sender: FDA-Public Use
  Company Number: GB-JNJFOC-20150319473

PATIENT
  Sex: Female

DRUGS (1)
  1. STELARA [Suspect]
     Active Substance: USTEKINUMAB
     Indication: PSORIASIS
     Route: 058
     Dates: start: 20110526

REACTIONS (7)
  - Chills [Unknown]
  - Large intestine polyp [Unknown]
  - Melanocytic naevus [Unknown]
  - Hyperaesthesia [Unknown]
  - Weight increased [Unknown]
  - Lower respiratory tract infection [Unknown]
  - Solar lentigo [Unknown]
